FAERS Safety Report 8106541 (Version 4)
Quarter: 2013Q1

REPORT INFORMATION
  Report Type: Spontaneous
  Country: US (occurrence: US)
  Receive Date: 20110825
  Receipt Date: 20130125
  Transmission Date: 20140127
  Serious: Yes (Hospitalization)
  Sender: FDA-Public Use
  Company Number: US-BAYER-2011-074980

PATIENT
  Age: 39 Year
  Sex: Female
  Weight: 48.53 kg

DRUGS (9)
  1. YAZ [Suspect]
     Indication: CONTRACEPTION
     Dosage: UNK
     Dates: start: 20090220, end: 2010
  2. LIPITOR [Concomitant]
  3. ASA [Concomitant]
  4. KEPPRA [Concomitant]
  5. PROTONIX [Concomitant]
  6. LEXAPRO [Concomitant]
  7. TYLENOL [Concomitant]
  8. COLACE [Concomitant]
  9. ATIVAN [Concomitant]
     Indication: CONVULSION

REACTIONS (2)
  - Cerebrovascular accident [None]
  - Injury [None]
